FAERS Safety Report 13691025 (Version 1)
Quarter: 2017Q2

REPORT INFORMATION
  Report Type: Spontaneous
  Country: US (occurrence: US)
  Receive Date: 20170626
  Receipt Date: 20170626
  Transmission Date: 20170830
  Serious: No
  Sender: FDA-Public Use
  Company Number: US-ROCHE-773985

PATIENT
  Age: 50 Year
  Sex: Male
  Weight: 81.6 kg

DRUGS (7)
  1. CELLCEPT [Suspect]
     Active Substance: MYCOPHENOLATE MOFETIL\MYCOPHENOLATE MOFETIL HYDROCHLORIDE
     Indication: EYE DISORDER
     Route: 048
  2. WARFARIN [Concomitant]
     Active Substance: WARFARIN
     Route: 065
  3. TRAMADOL. [Concomitant]
     Active Substance: TRAMADOL
     Route: 065
  4. VITAMIN C [Concomitant]
     Active Substance: ASCORBIC ACID
     Route: 065
  5. CELLCEPT [Suspect]
     Active Substance: MYCOPHENOLATE MOFETIL\MYCOPHENOLATE MOFETIL HYDROCHLORIDE
     Dosage: INCREASED DOSAGE
     Route: 048
  6. OMEPRAZOLE. [Concomitant]
     Active Substance: OMEPRAZOLE
     Route: 065
  7. ASPIRIN. [Concomitant]
     Active Substance: ASPIRIN
     Route: 065

REACTIONS (1)
  - International normalised ratio increased [Not Recovered/Not Resolved]

NARRATIVE: CASE EVENT DATE: 201104
